FAERS Safety Report 10357575 (Version 1)
Quarter: 2014Q3

REPORT INFORMATION
  Report Type: Spontaneous
  Country: US (occurrence: None)
  Receive Date: 20140730
  Receipt Date: 20140730
  Transmission Date: 20150326
  Serious: Yes (Disabling)
  Sender: FDA-Public Use
  Company Number: None

PATIENT
  Age: 58 Year
  Sex: Female
  Weight: 51.71 kg

DRUGS (5)
  1. PRIMIDONE. [Suspect]
     Active Substance: PRIMIDONE
     Indication: ESSENTIAL TREMOR
     Dosage: 1 PILL  TWICE DAILY BY MOUTH
     Route: 048
     Dates: start: 20140619
  2. ACETAMENIPHEN [Concomitant]
  3. IBUPROFEN. [Concomitant]
     Active Substance: IBUPROFEN
  4. PRIMIDONE. [Concomitant]
     Active Substance: PRIMIDONE
  5. ASPIRIN. [Concomitant]
     Active Substance: ASPIRIN

REACTIONS (1)
  - Product solubility abnormal [None]

NARRATIVE: CASE EVENT DATE: 20140619
